FAERS Safety Report 20812953 (Version 1)
Quarter: 2022Q2

REPORT INFORMATION
  Report Type: Spontaneous
  Country: AU (occurrence: AU)
  Receive Date: 20220511
  Receipt Date: 20220511
  Transmission Date: 20220720
  Serious: Yes (Other)
  Sender: FDA-Public Use
  Company Number: AU-ALKEM LABORATORIES LIMITED-AU-ALKEM-2022-04254

PATIENT
  Age: 72 Year
  Sex: Male

DRUGS (2)
  1. TACROLIMUS [Suspect]
     Active Substance: TACROLIMUS
     Indication: Product used for unknown indication
     Dosage: UNK
     Route: 065
  2. MYCOPHENOLATE MOFETIL [Concomitant]
     Active Substance: MYCOPHENOLATE MOFETIL
     Indication: Product used for unknown indication
     Dosage: UNK
     Route: 065

REACTIONS (9)
  - Bronchopulmonary aspergillosis [Unknown]
  - Enterococcal infection [Unknown]
  - Escherichia bacteraemia [Unknown]
  - Multiple organ dysfunction syndrome [Unknown]
  - Neutropenic sepsis [Unknown]
  - Pseudomonas infection [Unknown]
  - Septic shock [Unknown]
  - Colitis [Unknown]
  - Malacoplakia gastrointestinal [Unknown]
